FAERS Safety Report 11263718 (Version 8)
Quarter: 2020Q1

REPORT INFORMATION
  Report Type: Report from Study
  Country: MX (occurrence: MX)
  Receive Date: 20150713
  Receipt Date: 20200128
  Transmission Date: 20200409
  Serious: Yes (Life-Threatening, Disabling)
  Sender: FDA-Public Use
  Company Number: MX-ROCHE-1606518

PATIENT
  Age: 68 Year
  Sex: Female
  Weight: 69 kg

DRUGS (4)
  1. CANDESARTAN PLUS [Concomitant]
     Active Substance: CANDESARTAN CILEXETIL\HYDROCHLOROTHIAZIDE
     Indication: HYPERTENSION
     Dosage: EVERY DAY
     Route: 048
     Dates: start: 2000
  2. MABTHERA [Suspect]
     Active Substance: RITUXIMAB
     Indication: RHEUMATOID ARTHRITIS
     Dosage: 500MG ( 2 DOSES/ 1 EACH 15  DAYS) ONCE PER YEAR?LAST DOSE: 03/AUG/2015
     Route: 042
     Dates: start: 20130612, end: 20150803
  3. AMIODARONA [AMIODARONE] [Concomitant]
     Active Substance: AMIODARONE
     Indication: HYPERTENSION
     Route: 048
     Dates: start: 20150831
  4. IRON DEXTRAN [Concomitant]
     Active Substance: IRON DEXTRAN
     Indication: IRON DEFICIENCY
     Route: 030
     Dates: start: 201508

REACTIONS (18)
  - Dyspnoea [Recovering/Resolving]
  - Weight decreased [Unknown]
  - Alopecia [Recovering/Resolving]
  - Gastrointestinal infection [Not Recovered/Not Resolved]
  - Infarction [Recovered/Resolved]
  - Gait inability [Recovering/Resolving]
  - Haemorrhoidal haemorrhage [Recovered/Resolved]
  - Hypertension [Recovering/Resolving]
  - Platelet count decreased [Recovering/Resolving]
  - Cardiac disorder [Recovering/Resolving]
  - Anaemia [Recovered/Resolved]
  - Haemoglobin decreased [Not Recovered/Not Resolved]
  - Diarrhoea [Recovered/Resolved]
  - Pruritus [Recovering/Resolving]
  - Pallor [Recovered/Resolved]
  - Haematochezia [Recovered/Resolved]
  - Diarrhoea [Recovered/Resolved]
  - Gastrointestinal inflammation [Not Recovered/Not Resolved]

NARRATIVE: CASE EVENT DATE: 201412
